FAERS Safety Report 5122324-5 (Version None)
Quarter: 2006Q4

REPORT INFORMATION
  Report Type: 
  Country: None (occurrence: None)
  Receive Date: 20061003
  Receipt Date: 20060918
  Transmission Date: 20070319
  Serious: Yes (Hospitalization)
  Sender: FDA-Public Use
  Company Number: 2006PV020581

PATIENT
  Age: 46 Year
  Sex: Female
  Weight: 116.5744 kg

DRUGS (16)
  1. BYETTA [Suspect]
     Dosage: 10; 5 MCG; BID;SC
     Route: 058
     Dates: start: 20050927, end: 20050101
  2. BYETTA [Suspect]
     Dosage: 10; 5 MCG; BID;SC
     Route: 058
     Dates: start: 20050101, end: 20050516
  3. BYETTA [Suspect]
     Dosage: 10; 5 MCG; BID;SC
     Route: 058
     Dates: start: 20060601, end: 20060101
  4. BYETTA [Suspect]
     Dosage: 10; 5 MCG; BID;SC
     Route: 058
     Dates: start: 20060101
  5. SYNTHROID [Concomitant]
  6. LEXAPRO [Concomitant]
  7. PREVACID [Concomitant]
  8. ACIPHEX [Concomitant]
  9. VYTORIN [Concomitant]
  10. LORTAB [Concomitant]
  11. PHENERGAN [Concomitant]
  12. COZAAR [Concomitant]
  13. DEMADEX [Concomitant]
  14. ZAROXOLYN [Concomitant]
  15. KLOR-CON [Concomitant]
  16. NAPROSYN [Concomitant]

REACTIONS (14)
  - CANDIDIASIS [None]
  - DEEP VEIN THROMBOSIS [None]
  - DIABETIC KETOACIDOSIS [None]
  - DRUG TOXICITY [None]
  - HEADACHE [None]
  - HERNIA [None]
  - HYPOKALAEMIA [None]
  - HYPOMAGNESAEMIA [None]
  - HYPOTENSION [None]
  - INTESTINAL OBSTRUCTION [None]
  - PELVIC HAEMATOMA [None]
  - PERITONEAL HAEMORRHAGE [None]
  - RENAL FAILURE ACUTE [None]
  - SEPTIC SHOCK [None]
